FAERS Safety Report 7761847-7 (Version None)
Quarter: 2011Q3

REPORT INFORMATION
  Report Type: 
  Country: None (occurrence: None)
  Receive Date: 20110920
  Receipt Date: 20110914
  Transmission Date: 20111222
  Serious: Yes (Hospitalization)
  Sender: FDA-Public Use
  Company Number: US-SANOFI-AVENTIS-2011SA049317

PATIENT
  Age: 65 Year
  Sex: Male
  Weight: 73.48 kg

DRUGS (2)
  1. LOVENOX [Suspect]
     Indication: THROMBOSIS PROPHYLAXIS
     Route: 065
     Dates: start: 20110622, end: 20110703
  2. LOVENOX [Suspect]
     Route: 065
     Dates: start: 20110622, end: 20110703

REACTIONS (3)
  - ABDOMINAL PAIN UPPER [None]
  - PEPTIC ULCER [None]
  - GALLBLADDER DISORDER [None]
